FAERS Safety Report 6812598-4 (Version None)
Quarter: 2010Q3

REPORT INFORMATION
  Report Type: 
  Country: None (occurrence: None)
  Receive Date: 20100701
  Receipt Date: 20100622
  Transmission Date: 20110219
  Serious: Yes (Other)
  Sender: FDA-Public Use
  Company Number: IE-PFIZER INC-2010078094

PATIENT
  Age: 85 Year
  Sex: Male
  Weight: 55 kg

DRUGS (2)
  1. LIPITOR [Suspect]
     Indication: CARDIOVASCULAR EVENT PROPHYLAXIS
     Dosage: 80 MG, 1X/DAY
  2. MIRTAZAPINE [Concomitant]
     Dosage: UNK

REACTIONS (1)
  - LIVER DISORDER [None]
